FAERS Safety Report 15008529 (Version 1)
Quarter: 2018Q2

REPORT INFORMATION
  Report Type: Spontaneous
  Country: US (occurrence: US)
  Receive Date: 20180521
  Receipt Date: 20180521
  Transmission Date: 20180711
  Serious: Yes (Hospitalization)
  Sender: FDA-Public Use
  Company Number: None

PATIENT
  Age: 52 Year
  Sex: Male
  Weight: 78.4 kg

DRUGS (18)
  1. MIRTAZAPINE. [Concomitant]
     Active Substance: MIRTAZAPINE
  2. GEMCITABINE [Suspect]
     Active Substance: GEMCITABINE\GEMCITABINE HYDROCHLORIDE
     Dosage: ?          OTHER FREQUENCY:DAY 8-14;   DAY 8 04-04-2018  DAY 14-04-10-2018?
     Route: 048
  3. ONDANSETRON [Concomitant]
     Active Substance: ONDANSETRON
  4. COMPAZINE [Concomitant]
     Active Substance: PROCHLORPERAZINE MALEATE
  5. VITAMIN D3 [Concomitant]
     Active Substance: CHOLECALCIFEROL
  6. ATORVASTATIN [Concomitant]
     Active Substance: ATORVASTATIN
  7. MESALAMINE. [Concomitant]
     Active Substance: MESALAMINE
  8. MIRALAX [Concomitant]
     Active Substance: POLYETHYLENE GLYCOL 3350
  9. MULTIVITAMINS [Concomitant]
     Active Substance: VITAMINS
  10. METOPROLOL. [Concomitant]
     Active Substance: METOPROLOL
  11. SENNA [Concomitant]
     Active Substance: SENNA LEAF\SENNOSIDES\SENNOSIDES A AND B
  12. GABAPENTIN. [Concomitant]
     Active Substance: GABAPENTIN
  13. LEE011, RIBOCICLIB [Suspect]
     Active Substance: RIBOCICLIB
     Dosage: ?          OTHER FREQUENCY:DAY 1 + 8;  03-28-2018  04-04-2018?
     Route: 042
     Dates: start: 20180328
  14. PERCOCET [Concomitant]
     Active Substance: ACETAMINOPHEN\OXYCODONE HYDROCHLORIDE
  15. OLANZAPINE. [Concomitant]
     Active Substance: OLANZAPINE
  16. LEVOFLOXACIN. [Concomitant]
     Active Substance: LEVOFLOXACIN
  17. LIDODERM [Concomitant]
     Active Substance: LIDOCAINE
  18. OMEPRAZOLE. [Concomitant]
     Active Substance: OMEPRAZOLE

REACTIONS (1)
  - Lung infection [None]

NARRATIVE: CASE EVENT DATE: 20180501
